FAERS Safety Report 25215738 (Version 5)
Quarter: 2025Q3

REPORT INFORMATION
  Report Type: Spontaneous
  Country: JP (occurrence: JP)
  Receive Date: 20250418
  Receipt Date: 20250919
  Transmission Date: 20251021
  Serious: Yes (Hospitalization, Other)
  Sender: ROCHE
  Company Number: JP-CHUGAI-2025009607

PATIENT
  Age: 8 Decade
  Sex: Male

DRUGS (2)
  1. PIASKY [Suspect]
     Active Substance: CROVALIMAB-AKKZ
     Indication: Paroxysmal nocturnal haemoglobinuria
     Route: 058
  2. VOYDEYA [Suspect]
     Active Substance: DANICOPAN
     Indication: Paroxysmal nocturnal haemoglobinuria
     Route: 065

REACTIONS (8)
  - Pruritus [Recovered/Resolved]
  - Dry skin [Recovered/Resolved]
  - Urinary tract infection [Recovered/Resolved]
  - Fluid retention [Unknown]
  - Musculoskeletal stiffness [Recovered/Resolved]
  - COVID-19 [Recovered/Resolved]
  - Haemolysis [Recovering/Resolving]
  - Pneumonia [Recovered/Resolved]

NARRATIVE: CASE EVENT DATE: 20250301
